FAERS Safety Report 24666011 (Version 2)
Quarter: 2024Q4

REPORT INFORMATION
  Report Type: Spontaneous
  Country: BG (occurrence: BG)
  Receive Date: 20241126
  Receipt Date: 20241130
  Transmission Date: 20250114
  Serious: Yes (Death, Other)
  Sender: AMGEN
  Company Number: BG-AMGEN-BGRSP2024232020

PATIENT

DRUGS (2)
  1. LUMAKRAS [Suspect]
     Active Substance: SOTORASIB
     Indication: Non-small cell lung cancer metastatic
     Dosage: UNK
     Route: 065
  2. LUMAKRAS [Suspect]
     Active Substance: SOTORASIB
     Indication: K-ras gene mutation
     Dosage: UNK, REDUCED DOSE
     Route: 065

REACTIONS (3)
  - Death [Fatal]
  - Non-small cell lung cancer metastatic [Unknown]
  - Hepatotoxicity [Unknown]
